FAERS Safety Report 16131390 (Version 1)
Quarter: 2019Q1

REPORT INFORMATION
  Report Type: Spontaneous
  Country: CN (occurrence: CN)
  Receive Date: 20190328
  Receipt Date: 20190328
  Transmission Date: 20190418
  Serious: Yes (Hospitalization, Other)
  Sender: FDA-Public Use
  Company Number: CN-BAXTER-2019BAX005903

PATIENT
  Age: 55 Year
  Sex: Female
  Weight: 55 kg

DRUGS (12)
  1. 0.9% SODIUM CHLORIDE INJECTION [Suspect]
     Active Substance: SODIUM CHLORIDE
     Dosage: NORMAL SALINE 500 ML + FLUOROURACIL 0.75 G, CYCLE 6 CHEMOTHERAPY
     Route: 041
     Dates: start: 20190219, end: 20190219
  2. PIRARUBICIN HYDROCHLORIDE [Suspect]
     Active Substance: PIRARUBICIN HYDROCHLORIDE
     Dosage: DOSAGE FORM: POWDER INJECTION, 5% GLUCOSE INJECTION 50 ML + PIRARUBICIN HYDROCHLORIDE 75 MG, CYCLE 6
     Route: 041
     Dates: start: 20190219, end: 20190219
  3. 0.9% SODIUM CHLORIDE INJECTION [Suspect]
     Active Substance: SODIUM CHLORIDE
     Indication: MEDICATION DILUTION
     Dosage: NORMAL SALINE + FLUOROURACIL, 1 TO 5 CYCLES OF CHEMOTHERAPY
     Route: 041
  4. GLUCOSE [Suspect]
     Active Substance: DEXTROSE
     Indication: MEDICATION DILUTION
     Dosage: 5% GLUCOSE INJECTION + PIRARUBICIN HYDROCHLORIDE, 1 TO 5 CYCLES OF CHEMOTHERAPY
     Route: 041
  5. FLUOROURACIL. [Suspect]
     Active Substance: FLUOROURACIL
     Indication: BREAST CANCER
     Dosage: NORMAL SALINE + FLUOROURACIL, 1 TO 5 CYCLES OF CHEMOTHERAPY
     Route: 041
  6. GLUCOSE [Suspect]
     Active Substance: DEXTROSE
     Dosage: 5% GLUCOSE INJECTION 50 ML + PIRARUBICIN HYDROCHLORIDE 75 MG, CYCLE 6 CHEMOTHERAPY
     Route: 041
     Dates: start: 20190219, end: 20190219
  7. ENDOXAN [Suspect]
     Active Substance: CYCLOPHOSPHAMIDE
     Dosage: DOSAGE FORM: INJECTION, NORMAL SALINE 50 ML + CYCLOPHOSPHAMIDE 0.9 G, CYCLE 6 CHEMOTHERAPY
     Route: 041
     Dates: start: 20190219, end: 20190219
  8. SODIUM CHLORIDE. [Suspect]
     Active Substance: SODIUM CHLORIDE
     Dosage: NORMAL SALINE 50 ML + CYCLOPHOSPHAMIDE 0.9 G, CYCLE 6 CHEMOTHERAPY
     Route: 041
     Dates: start: 20190219, end: 20190219
  9. ENDOXAN [Suspect]
     Active Substance: CYCLOPHOSPHAMIDE
     Indication: BREAST CANCER
     Dosage: DOSAGE FORM: INJECTION, NORMAL SALINE + CYCLOPHOSPHAMIDE, 1 TO 5 CYCLES OF CHEMOTHERAPY
     Route: 041
  10. FLUOROURACIL. [Suspect]
     Active Substance: FLUOROURACIL
     Dosage: NORMAL SALINE 500 ML + FLUOROURACIL 0.75 G, CYCLE 6 CHEMOTHERAPY
     Route: 041
     Dates: start: 20190219, end: 20190219
  11. PIRARUBICIN HYDROCHLORIDE [Suspect]
     Active Substance: PIRARUBICIN HYDROCHLORIDE
     Indication: BREAST CANCER
     Dosage: DOSAGE FORM: POWDER INJECTION, 5% GLUCOSE INJECTION + PIRARUBICIN HYDROCHLORIDE, 1 TO 5 CYCLES OF CH
     Route: 041
  12. SODIUM CHLORIDE. [Suspect]
     Active Substance: SODIUM CHLORIDE
     Indication: MEDICATION DILUTION
     Dosage: NORMAL SALINE + CYCLOPHOSPHAMIDE, 1 TO 5 CYCLES OF CHEMOTHERAPY
     Route: 041

REACTIONS (4)
  - Thrombocytopenia [Recovering/Resolving]
  - Agranulocytosis [Recovering/Resolving]
  - Bone marrow failure [Unknown]
  - Erythropenia [Recovering/Resolving]

NARRATIVE: CASE EVENT DATE: 20190302
